FAERS Safety Report 8201604-0 (Version None)
Quarter: 2012Q1

REPORT INFORMATION
  Report Type: 
  Country: None (occurrence: None)
  Receive Date: 20120312
  Receipt Date: 20120302
  Transmission Date: 20120608
  Serious: Yes (Hospitalization)
  Sender: FDA-Public Use
  Company Number: US-UCBSA-052683

PATIENT
  Age: 50 Year
  Sex: Female

DRUGS (10)
  1. KEPPRA [Suspect]
     Dates: start: 20111228, end: 20120107
  2. TOPAMAX [Concomitant]
     Dates: start: 20120220, end: 20120223
  3. VIMPAT [Suspect]
     Indication: CONVULSION
     Dosage: DOSER:50 MG IN  MORNING + 100 MG IN THE NIGHT
     Route: 048
     Dates: start: 20120229
  4. KEPPRA [Suspect]
     Indication: CONVULSION
     Dates: start: 20120108, end: 20120209
  5. KEPPRA [Suspect]
     Indication: CONVERSION DISORDER
     Dates: start: 20120108, end: 20120209
  6. KEPPRA [Suspect]
     Dates: start: 20111228, end: 20120107
  7. TOPAMAX [Concomitant]
     Indication: CONVULSION
     Dates: start: 20120224
  8. LAMICTAL [Concomitant]
     Indication: CONVULSION
     Dates: start: 20120213, end: 20120220
  9. VIMPAT [Suspect]
     Dosage: DOSE:50MG IN  MORNING +  NIGHT
     Route: 048
     Dates: start: 20120227, end: 20120228
  10. SYNTHROID [Concomitant]
     Indication: HYPOTHYROIDISM
     Dosage: UNKNOWN DOSE FROM PAST 10 YEARS OR LESS

REACTIONS (4)
  - CONVULSION [None]
  - EYE SWELLING [None]
  - EYE PRURITUS [None]
  - GRAND MAL CONVULSION [None]
